FAERS Safety Report 9555776 (Version 1)
Quarter: 2013Q3

REPORT INFORMATION
  Report Type: Spontaneous
  Country: US (occurrence: None)
  Receive Date: 20130906
  Receipt Date: 20130906
  Transmission Date: 20140515
  Serious: Yes (Other)
  Sender: FDA-Public Use
  Company Number: 163-POMAL-13054555

PATIENT
  Sex: Male

DRUGS (1)
  1. POMALYST (POMALIDOMIDE) (2 MILLIGRAM, CAPSULES) [Suspect]
     Indication: PLASMA CELL MYELOMA
     Dosage: DISCONTINUED?
     Route: 048
     Dates: start: 201305

REACTIONS (3)
  - Palpitations [None]
  - Gait disturbance [None]
  - Dyspnoea [None]
